FAERS Safety Report 6220136-2 (Version None)
Quarter: 2009Q2

REPORT INFORMATION
  Report Type: 
  Country: None (occurrence: None)
  Receive Date: 20090609
  Receipt Date: 20090601
  Transmission Date: 20091009
  Serious: Yes (Other)
  Sender: FDA-Public Use
  Company Number: US-AMGEN-QUU349694

PATIENT

DRUGS (2)
  1. NEULASTA [Suspect]
     Indication: DRUG USE FOR UNKNOWN INDICATION
     Route: 065
  2. ARANESP [Suspect]
     Indication: MYELODYSPLASTIC SYNDROME

REACTIONS (1)
  - THROMBOCYTOPENIA [None]
